FAERS Safety Report 13654242 (Version 1)
Quarter: 2017Q2

REPORT INFORMATION
  Report Type: Spontaneous
  Country: SE (occurrence: SE)
  Receive Date: 20170614
  Receipt Date: 20170614
  Transmission Date: 20170830
  Serious: Yes (Hospitalization)
  Sender: FDA-Public Use
  Company Number: PHHY2017SE084058

PATIENT
  Age: 24 Year
  Sex: Male
  Weight: 73 kg

DRUGS (1)
  1. BISOPROLOL [Suspect]
     Active Substance: BISOPROLOL
     Indication: LONG QT SYNDROME
     Dosage: 5 MG, QD
     Route: 065
     Dates: start: 201408

REACTIONS (5)
  - Ventricular extrasystoles [Unknown]
  - Tachycardia [Unknown]
  - Palpitations [Unknown]
  - Syncope [Unknown]
  - Urinary incontinence [Unknown]
